FAERS Safety Report 4452406-2 (Version None)
Quarter: 2004Q3

REPORT INFORMATION
  Report Type: 
  Country: None (occurrence: None)
  Receive Date: 20040917
  Receipt Date: 20040910
  Transmission Date: 20050211
  Serious: Yes (Other)
  Sender: FDA-Public Use
  Company Number: PHNU2004DE03201

PATIENT
  Sex: Female

DRUGS (2)
  1. IMMUNOSPORIN [Suspect]
     Indication: RHEUMATOID ARTHRITIS
  2. CELEBREX [Suspect]
     Dosage: UNK, PRN

REACTIONS (2)
  - DIARRHOEA [None]
  - ENTEROCOLITIS HAEMORRHAGIC [None]
